FAERS Safety Report 13678371 (Version 6)
Quarter: 2020Q1

REPORT INFORMATION
  Report Type: Spontaneous
  Country: FI (occurrence: FI)
  Receive Date: 20170622
  Receipt Date: 20200226
  Transmission Date: 20200409
  Serious: Yes (Hospitalization, Other)
  Sender: FDA-Public Use
  Company Number: FI-PFIZER INC-2017230356

PATIENT
  Age: 44 Year
  Sex: Female

DRUGS (2)
  1. CORDARONE [Suspect]
     Active Substance: AMIODARONE HYDROCHLORIDE
     Dosage: UNK
     Route: 065
     Dates: start: 199003, end: 199205
  2. TYRAZOL [Suspect]
     Active Substance: CARBIMAZOLE
     Indication: HYPERTHYROIDISM
     Dosage: UNK
     Route: 065
     Dates: end: 1992

REACTIONS (17)
  - Paraesthesia [Not Recovered/Not Resolved]
  - Infection [Unknown]
  - Paraesthesia [Recovering/Resolving]
  - Vomiting [Unknown]
  - Burning sensation [Not Recovered/Not Resolved]
  - Hyperthyroidism [Recovering/Resolving]
  - Hypothyroidism [Unknown]
  - Decreased appetite [Unknown]
  - Vitamin B complex deficiency [Unknown]
  - Product use issue [Unknown]
  - Tenderness [Not Recovered/Not Resolved]
  - Nausea [Unknown]
  - C-reactive protein increased [Recovered/Resolved]
  - Pain in extremity [Not Recovered/Not Resolved]
  - Myalgia [Not Recovered/Not Resolved]
  - Weight decreased [Unknown]
  - Malaise [Unknown]

NARRATIVE: CASE EVENT DATE: 199205
